FAERS Safety Report 25186899 (Version 1)
Quarter: 2025Q2

REPORT INFORMATION
  Report Type: Spontaneous
  Country: US (occurrence: US)
  Receive Date: 20250411
  Receipt Date: 20250411
  Transmission Date: 20250716
  Serious: No
  Sender: SANOFI AVENTIS
  Company Number: US-SA-2025SA101612

PATIENT
  Sex: Male
  Weight: 136.36 kg

DRUGS (9)
  1. DUPIXENT [Suspect]
     Active Substance: DUPILUMAB
     Indication: Neurodermatitis
     Dosage: 300 MG, QOW
     Route: 058
     Dates: start: 201904
  2. LEVOCETIRIZINE [Concomitant]
     Active Substance: LEVOCETIRIZINE
  3. LISINOPRIL [Concomitant]
     Active Substance: LISINOPRIL
  4. MONTELUKAST [Concomitant]
     Active Substance: MONTELUKAST
  5. MOUNJARO [Concomitant]
     Active Substance: TIRZEPATIDE
  6. OMEPRAZOLE [Concomitant]
     Active Substance: OMEPRAZOLE
  7. ROSUVASTATIN [Concomitant]
     Active Substance: ROSUVASTATIN
  8. SERTRALINE [Concomitant]
     Active Substance: SERTRALINE HYDROCHLORIDE
  9. TRAZODONE [Concomitant]
     Active Substance: TRAZODONE HYDROCHLORIDE

REACTIONS (2)
  - Rebound effect [Unknown]
  - Drug ineffective [Unknown]
